FAERS Safety Report 8052591-X (Version None)
Quarter: 2012Q1

REPORT INFORMATION
  Report Type: 
  Country: None (occurrence: None)
  Receive Date: 20120117
  Receipt Date: 20120117
  Transmission Date: 20120608
  Serious: Yes (Hospitalization)
  Sender: FDA-Public Use
  Company Number: None

PATIENT
  Age: 67 Year
  Sex: Male
  Weight: 92 kg

DRUGS (2)
  1. SIMVASTATIN [Suspect]
     Dosage: 80 MG AT BEDTIME PO
     Route: 048
  2. CYCLOSPORINE [Suspect]
     Dosage: 100 MG BID PO
     Route: 048
     Dates: start: 20110330, end: 20110824

REACTIONS (2)
  - RHABDOMYOLYSIS [None]
  - MYALGIA [None]
